FAERS Safety Report 10031460 (Version 1)
Quarter: 2014Q1

REPORT INFORMATION
  Report Type: Spontaneous
  Country: IT (occurrence: IT)
  Receive Date: 20140324
  Receipt Date: 20140324
  Transmission Date: 20141002
  Serious: Yes (Other)
  Sender: FDA-Public Use
  Company Number: IT-MPIJNJ-2014JNJ000995

PATIENT
  Sex: 0

DRUGS (3)
  1. VELCADE [Suspect]
     Indication: PLASMA CELL MYELOMA
     Route: 058
  2. MELPHALAN [Suspect]
     Indication: PLASMA CELL MYELOMA
     Dosage: UNK
     Route: 065
  3. PREDNISONE [Suspect]
     Indication: PLASMA CELL MYELOMA
     Route: 065

REACTIONS (6)
  - Cardiac disorder [Unknown]
  - Gastrointestinal disorder [Unknown]
  - Infection [Unknown]
  - Thrombocytopenia [Unknown]
  - Neuralgia [Unknown]
  - Peripheral sensory neuropathy [Unknown]
